FAERS Safety Report 6070865-9 (Version None)
Quarter: 2009Q1

REPORT INFORMATION
  Report Type: 
  Country: None (occurrence: None)
  Receive Date: 20090209
  Receipt Date: 20081015
  Transmission Date: 20090719
  Serious: Yes (Other)
  Sender: FDA-Public Use
  Company Number: A0752007A

PATIENT
  Age: 17 Year
  Sex: Female

DRUGS (2)
  1. PAXIL [Suspect]
     Dosage: 5MG PER DAY
     Route: 048
     Dates: start: 20040101, end: 20080901
  2. NO CONCURRENT MEDICATION [Concomitant]

REACTIONS (5)
  - ABNORMAL DREAMS [None]
  - ANXIETY [None]
  - EMOTIONAL DISORDER [None]
  - PARAESTHESIA [None]
  - THINKING ABNORMAL [None]
